FAERS Safety Report 4976392-1 (Version None)
Quarter: 2006Q2

REPORT INFORMATION
  Report Type: 
  Country: None (occurrence: None)
  Receive Date: 20060412
  Receipt Date: 20060331
  Transmission Date: 20061013
  Serious: Yes (Other)
  Sender: FDA-Public Use
  Company Number: CHWYE522531MAR06

PATIENT
  Age: 27 Year
  Sex: Female

DRUGS (4)
  1. EFFEXOR [Suspect]
     Indication: MENTAL DISORDER
     Dosage: 37.5  MG 1X PER 1 DAY ORAL
     Route: 048
     Dates: end: 20060201
  2. METRONIDAZOLE [Concomitant]
     Indication: BLASTOCYSTIS INFECTION
     Dosage: 500 MG 3X PER 1 DAY
     Route: 048
     Dates: start: 20060212, end: 20060213
  3. OPTOVIT (TOCOPHEROL) [Concomitant]
  4. MULTIVITAMINS WITH MINERALS (MULTIVITAMINS WITH MINERALS) [Concomitant]

REACTIONS (9)
  - CHOKING SENSATION [None]
  - DEMYELINATION [None]
  - DRUG WITHDRAWAL SYNDROME [None]
  - DYSAESTHESIA PHARYNX [None]
  - HYPOTENSION [None]
  - MALAISE [None]
  - NAUSEA [None]
  - PALPITATIONS [None]
  - SYNCOPE [None]
